FAERS Safety Report 5499775-2 (Version None)
Quarter: 2007Q4

REPORT INFORMATION
  Report Type: 
  Country: None (occurrence: None)
  Receive Date: 20071026
  Receipt Date: 20071017
  Transmission Date: 20080405
  Serious: Yes (Hospitalization)
  Sender: FDA-Public Use
  Company Number: DE-ROCHE-488881

PATIENT
  Age: 22 Year
  Sex: Female
  Weight: 54.4 kg

DRUGS (13)
  1. VALGANCICLOVIR HCL [Suspect]
     Route: 048
     Dates: start: 20061019
  2. MYCOPHENOLATE MOFETIL [Suspect]
     Indication: DRUG USE FOR UNKNOWN INDICATION
     Route: 065
     Dates: start: 20061228
  3. PROGRAF [Suspect]
     Indication: DRUG USE FOR UNKNOWN INDICATION
     Route: 065
     Dates: start: 20070105
  4. PROGRAF [Suspect]
     Route: 065
     Dates: start: 20070104, end: 20070104
  5. PROGRAF [Suspect]
     Route: 065
     Dates: start: 20070103, end: 20070103
  6. PROGRAF [Suspect]
     Route: 065
     Dates: start: 20061222, end: 20070102
  7. URBASON [Suspect]
     Indication: DRUG USE FOR UNKNOWN INDICATION
     Route: 065
     Dates: start: 20061130
  8. METOPROLOL SUCCINATE [Concomitant]
     Dates: start: 20061101
  9. VESDIL [Concomitant]
     Dates: start: 20061227
  10. ACC [Concomitant]
     Dates: start: 20070101, end: 20070108
  11. NEORECORMON [Concomitant]
     Dates: start: 20061109
  12. DECOSTRIOL [Concomitant]
     Dates: start: 20061130
  13. SIMVAHEXAL [Concomitant]
     Dates: start: 20061030

REACTIONS (1)
  - GASTROINTESTINAL INFECTION [None]
